FAERS Safety Report 8341423-8 (Version None)
Quarter: 2012Q2

REPORT INFORMATION
  Report Type: 
  Country: None (occurrence: None)
  Receive Date: 20120507
  Receipt Date: 20120424
  Transmission Date: 20120825
  Serious: Yes (Hospitalization)
  Sender: FDA-Public Use
  Company Number: US-MERCK-1204USA03860

PATIENT

DRUGS (2)
  1. PRAVACHOL [Concomitant]
     Route: 065
  2. ZETIA [Suspect]
     Indication: LOW DENSITY LIPOPROTEIN DECREASED
     Route: 048

REACTIONS (2)
  - RENAL DISORDER [None]
  - WEIGHT ABNORMAL [None]
